FAERS Safety Report 5702903-4 (Version None)
Quarter: 2008Q2

REPORT INFORMATION
  Report Type: 
  Country: None (occurrence: None)
  Receive Date: 20080410
  Receipt Date: 20080410
  Transmission Date: 20081010
  Serious: Yes (Hospitalization)
  Sender: FDA-Public Use
  Company Number: None

PATIENT
  Age: 64 Year
  Sex: Male
  Weight: 67 kg

DRUGS (12)
  1. DOCETAXEL [Suspect]
     Indication: METASTATIC SQUAMOUS CELL CARCINOMA
     Dosage: 137MG Q21DAYS IV
     Route: 042
     Dates: start: 20080221
  2. DOCETAXEL [Suspect]
     Indication: METASTATIC SQUAMOUS CELL CARCINOMA
     Dosage: 137MG Q21DAYS IV
     Route: 042
     Dates: start: 20080313
  3. ZACTIMA [Suspect]
     Indication: METASTATIC SQUAMOUS CELL CARCINOMA
     Dosage: 100MG QDAY PO
     Route: 048
     Dates: start: 20080221, end: 20080224
  4. ZACTIMA [Suspect]
     Indication: METASTATIC SQUAMOUS CELL CARCINOMA
     Dosage: 100MG QDAY PO
     Route: 048
     Dates: start: 20080313, end: 20080320
  5. VALIUM [Concomitant]
  6. ROXANOL [Concomitant]
  7. LIPITOR [Concomitant]
  8. FLOMAX [Concomitant]
  9. COLACE [Concomitant]
  10. FENTANYL [Concomitant]
  11. METOCLOPRAMIDE [Concomitant]
  12. PANTOPRAZOLE SODIUM [Concomitant]

REACTIONS (6)
  - ABDOMINAL PAIN [None]
  - ANASTOMOTIC HAEMORRHAGE [None]
  - FAECES DISCOLOURED [None]
  - GASTROINTESTINAL HAEMORRHAGE [None]
  - HAEMOGLOBIN DECREASED [None]
  - ORAL INTAKE REDUCED [None]
